FAERS Safety Report 8571869 (Version 5)
Quarter: 2014Q1

REPORT INFORMATION
  Report Type: Spontaneous
  Country: US (occurrence: US)
  Receive Date: 20120521
  Receipt Date: 20140321
  Transmission Date: 20141002
  Serious: Yes (Death)
  Sender: FDA-Public Use
  Company Number: US-B.I. PHARMACEUTICALS,INC./RIDGEFIELD-2012-BP-11043BP

PATIENT
  Sex: Male

DRUGS (10)
  1. PRADAXA [Suspect]
     Indication: ATRIAL FIBRILLATION
     Dosage: 300 MG
     Route: 065
     Dates: start: 20110429, end: 20110528
  2. PRADAXA [Suspect]
     Indication: ANTICOAGULANT THERAPY
  3. ARTHROTEC [Concomitant]
     Route: 065
  4. PRAVACHOL [Concomitant]
     Route: 065
  5. ZESTRIL [Concomitant]
     Route: 065
  6. TRIAMTERENE [Concomitant]
     Route: 065
  7. CARDURE [Concomitant]
     Route: 065
  8. DIOVAN [Concomitant]
     Route: 065
  9. PERCOCET [Concomitant]
     Route: 065
  10. ASPIRIN [Concomitant]
     Route: 065

REACTIONS (2)
  - Gastrointestinal haemorrhage [Fatal]
  - Myocardial infarction [Fatal]
